FAERS Safety Report 21089742 (Version 1)
Quarter: 2022Q3

REPORT INFORMATION
  Report Type: Spontaneous
  Country: US (occurrence: None)
  Receive Date: 20220715
  Receipt Date: 20220715
  Transmission Date: 20221027
  Serious: Yes (Hospitalization, Disabling, Other)
  Sender: FDA-Public Use
  Company Number: None

PATIENT
  Age: 52 Year
  Sex: Male
  Weight: 99 kg

DRUGS (6)
  1. CIPROFLOXACIN [Suspect]
     Active Substance: CIPROFLOXACIN
     Indication: Prostate infection
     Dosage: FREQUENCY : TWICE A DAY;?
     Route: 048
     Dates: start: 20220708, end: 20220708
  2. CARVEDILOL [Concomitant]
     Active Substance: CARVEDILOL
  3. LISINOPRIL [Concomitant]
     Active Substance: LISINOPRIL
  4. spironolacton-hydrochlorothiazide [Concomitant]
  5. LOW DOSE ASPIRIN [Concomitant]
     Active Substance: ASPIRIN
  6. one a day 50+ multi-vitamin [Concomitant]

REACTIONS (7)
  - Disturbance in attention [None]
  - Tinnitus [None]
  - Vision blurred [None]
  - Vertigo [None]
  - Hyperhidrosis [None]
  - Mobility decreased [None]
  - Hypoaesthesia [None]

NARRATIVE: CASE EVENT DATE: 20220709
